FAERS Safety Report 7493085-X (Version None)
Quarter: 2011Q2

REPORT INFORMATION
  Report Type: 
  Country: None (occurrence: None)
  Receive Date: 20110520
  Receipt Date: 20110517
  Transmission Date: 20111010
  Serious: No
  Sender: FDA-Public Use
  Company Number: US-PFIZER INC-2011106933

PATIENT
  Sex: Male

DRUGS (2)
  1. CELEBREX [Suspect]
     Indication: MUSCULOSKELETAL STIFFNESS
     Dosage: UNK
     Dates: start: 20110516
  2. ANACIN [Suspect]
     Dosage: UNK
     Dates: start: 20110517

REACTIONS (2)
  - PAIN [None]
  - MUSCULOSKELETAL STIFFNESS [None]
